FAERS Safety Report 9248542 (Version 1)
Quarter: 2013Q1

REPORT INFORMATION
  Report Type: Spontaneous
  Country: US (occurrence: None)
  Receive Date: 20130305
  Receipt Date: 20130305
  Transmission Date: 20140127
  Serious: Yes (Other)
  Sender: FDA-Public Use
  Company Number: 163-21880-12092722

PATIENT
  Age: 69 Year
  Sex: Male

DRUGS (1)
  1. REVLIMID (LENALIDOMIDE0) (5 MILLIGRAM, CAPSULES) [Suspect]
     Indication: LYMPHOCYTIC LEUKAEMIA
     Dosage: 28 IN 28 D.
     Route: 048
     Dates: start: 20120831

REACTIONS (4)
  - Pain [None]
  - Rash [None]
  - Swelling [None]
  - Infection [None]
